FAERS Safety Report 26133087 (Version 1)
Quarter: 2025Q4

REPORT INFORMATION
  Report Type: Spontaneous
  Country: ZA (occurrence: ZA)
  Receive Date: 20251209
  Receipt Date: 20251209
  Transmission Date: 20260118
  Serious: Yes (Other)
  Sender: SANOFI AVENTIS
  Company Number: None

PATIENT
  Age: 45 Year
  Sex: Male

DRUGS (2)
  1. COLCHICINE [Interacting]
     Active Substance: COLCHICINE
     Indication: Product used for unknown indication
     Dosage: UNK
     Route: 065
  2. RIFAMPIN [Interacting]
     Active Substance: RIFAMPIN
     Indication: Skin disorder
     Dosage: 600 MG, BID
     Route: 048

REACTIONS (2)
  - Gout [Unknown]
  - Drug interaction [Unknown]
